FAERS Safety Report 24174571 (Version 2)
Quarter: 2024Q3

REPORT INFORMATION
  Report Type: Spontaneous
  Country: US (occurrence: US)
  Receive Date: 20240805
  Receipt Date: 20240902
  Transmission Date: 20241016
  Serious: Yes (Other)
  Sender: GLAXOSMITHKLINE
  Company Number: US-GSKCCFUS-Case-02066374_AE-114330

PATIENT

DRUGS (1)
  1. BREO ELLIPTA [Suspect]
     Active Substance: FLUTICASONE FUROATE\VILANTEROL TRIFENATATE
     Indication: Chronic obstructive pulmonary disease
     Dosage: UNK UNK, QD,100/25 MCG

REACTIONS (4)
  - Myasthenia gravis [Unknown]
  - Wrong technique in device usage process [Recovered/Resolved]
  - Product dose omission issue [Unknown]
  - Product complaint [Unknown]
